FAERS Safety Report 9571889 (Version 1)
Quarter: 2013Q4

REPORT INFORMATION
  Report Type: Report from Study
  Country: US (occurrence: US)
  Receive Date: 20131001
  Receipt Date: 20131001
  Transmission Date: 20140711
  Serious: Yes (Other)
  Sender: FDA-Public Use
  Company Number: US-ROCHE-1281982

PATIENT
  Age: 66 Year
  Sex: Male
  Weight: 81.72 kg

DRUGS (10)
  1. XOLAIR [Suspect]
     Indication: ASTHMA
     Route: 058
     Dates: start: 201308, end: 201309
  2. DIOVAN [Concomitant]
     Indication: HYPERTENSION
     Dosage: 80/12.5 MG
     Route: 048
     Dates: start: 2006
  3. TRILEPTAL [Concomitant]
     Indication: CONVULSION
     Route: 048
     Dates: start: 2005
  4. LIPITOR [Concomitant]
     Indication: BLOOD CHOLESTEROL INCREASED
     Route: 048
     Dates: start: 201306
  5. SPIRIVA [Concomitant]
     Indication: ASTHMA
     Route: 055
     Dates: start: 201307
  6. NASONEX [Concomitant]
     Indication: HYPERSENSITIVITY
     Dosage: TWO SPRAYS ONCE DAILY
     Route: 065
     Dates: start: 2005
  7. SINGULAIR [Concomitant]
     Indication: HYPERSENSITIVITY
     Route: 048
     Dates: start: 2009
  8. ALLEGRA [Concomitant]
     Indication: HYPERSENSITIVITY
     Route: 048
     Dates: start: 2007
  9. UROXATRAL [Concomitant]
     Indication: PROSTATOMEGALY
     Route: 048
     Dates: start: 2006
  10. PROSCAR [Concomitant]
     Indication: PROSTATOMEGALY
     Route: 048

REACTIONS (5)
  - Dyspnoea [Recovered/Resolved]
  - Wheezing [Recovered/Resolved]
  - Pruritus [Recovered/Resolved]
  - Rash erythematous [Recovered/Resolved]
  - Pruritus [Recovered/Resolved]
